FAERS Safety Report 7674263-3 (Version None)
Quarter: 2011Q3

REPORT INFORMATION
  Report Type: 
  Country: None (occurrence: None)
  Receive Date: 20110810
  Receipt Date: 20110805
  Transmission Date: 20111222
  Serious: Yes (Hospitalization)
  Sender: FDA-Public Use
  Company Number: IT-PFIZER INC-2011182011

PATIENT
  Age: 48 Year
  Sex: Male

DRUGS (9)
  1. DEURSIL [Concomitant]
  2. TRAMADOL HYDROCHLORIDE AND ACETAMINOPHEN [Concomitant]
  3. ORUDIS [Suspect]
     Indication: BACK PAIN
     Dosage: 400 MG, DAILY
     Route: 048
     Dates: start: 20110415, end: 20110420
  4. TORADOL [Suspect]
     Indication: BACK PAIN
     Dosage: 40 GTT, DAILY
     Route: 048
     Dates: start: 20110325, end: 20110415
  5. ARTHROTEC [Suspect]
     Indication: BACK PAIN
     Dosage: 1 DF, 1X/DAY
     Route: 048
     Dates: start: 20110315, end: 20110325
  6. AULIN [Suspect]
     Indication: BACK PAIN
     Dosage: 100 MG, AS NEEDED
     Route: 048
     Dates: start: 20110101, end: 20110415
  7. VOLTAREN [Suspect]
     Indication: BACK PAIN
     Dosage: 75 MG, 1X/DAY
     Route: 048
     Dates: start: 20110101, end: 20110415
  8. TENORETIC 100 [Suspect]
     Indication: HYPERTENSION
     Dosage: 1 DF, 1X/DAY
     Route: 048
     Dates: start: 20060421, end: 20110421
  9. TEVETENS [Concomitant]

REACTIONS (2)
  - RENAL FAILURE ACUTE [None]
  - RETROPERITONEAL FIBROSIS [None]
